FAERS Safety Report 17921772 (Version 1)
Quarter: 2020Q2

REPORT INFORMATION
  Report Type: Spontaneous
  Country: US (occurrence: US)
  Receive Date: 20200622
  Receipt Date: 20200622
  Transmission Date: 20200714
  Serious: Yes (Other)
  Sender: FDA-Public Use
  Company Number: US-AUROBINDO-AUR-APL-2020-020572

PATIENT
  Age: 29 Year
  Sex: Female

DRUGS (1)
  1. CLOZAPINE TABLET [Suspect]
     Active Substance: CLOZAPINE
     Indication: PRODUCT USED FOR UNKNOWN INDICATION
     Dosage: UNK
     Route: 048

REACTIONS (6)
  - Pancreatitis chronic [Unknown]
  - Neutropenia [Unknown]
  - Neutrophilia [Unknown]
  - Unevaluable event [Unknown]
  - Malaise [Unknown]
  - Eating disorder [Unknown]

NARRATIVE: CASE EVENT DATE: 20200414
